FAERS Safety Report 14911777 (Version 1)
Quarter: 2018Q2

REPORT INFORMATION
  Report Type: Spontaneous
  Country: FR (occurrence: FR)
  Receive Date: 20180518
  Receipt Date: 20180518
  Transmission Date: 20180711
  Serious: Yes (Other)
  Sender: FDA-Public Use
  Company Number: FR-MERCK KGAA-2048037

PATIENT
  Age: 45 Year
  Sex: Female

DRUGS (1)
  1. NOVOTHYROX [Suspect]
     Active Substance: LEVOTHYROXINE SODIUM
     Indication: POST PROCEDURAL HYPOTHYROIDISM
     Dates: start: 201705

REACTIONS (15)
  - Myalgia [None]
  - Fatigue [None]
  - Angina pectoris [None]
  - Renal pain [None]
  - Muscle spasms [None]
  - Impatience [None]
  - Dizziness [None]
  - Chest pain [None]
  - Alopecia [None]
  - Suffocation feeling [None]
  - Abdominal pain upper [None]
  - Memory impairment [None]
  - Hot flush [None]
  - Decreased activity [None]
  - Decreased interest [None]

NARRATIVE: CASE EVENT DATE: 201706
